FAERS Safety Report 4811150-X (Version None)
Quarter: 2005Q4

REPORT INFORMATION
  Report Type: 
  Country: None (occurrence: None)
  Receive Date: 20051027
  Receipt Date: 20051024
  Transmission Date: 20060501
  Serious: Yes (Hospitalization)
  Sender: FDA-Public Use
  Company Number: FR-GLAXOSMITHKLINE-B0398442A

PATIENT
  Age: 89 Year
  Sex: Female

DRUGS (5)
  1. AUGMENTIN '125' [Suspect]
     Dosage: 3G PER DAY
     Route: 048
     Dates: start: 20050930, end: 20050930
  2. AUGMENTIN '125' [Suspect]
     Dosage: 3G PER DAY
     Route: 042
     Dates: start: 20050929, end: 20050929
  3. PROPOXYPHENE 65 ACETAMINOPHEN COMPOUND CAP [Suspect]
     Route: 048
     Dates: start: 20050930, end: 20051001
  4. LASILIX [Suspect]
     Dosage: 40MG PER DAY
     Route: 048
     Dates: start: 20050929, end: 20051001
  5. DAFALGAN [Suspect]
     Dosage: 3G PER DAY
     Route: 048
     Dates: start: 20050929, end: 20051001

REACTIONS (3)
  - BURNING SENSATION [None]
  - PRURITUS [None]
  - RASH MACULO-PAPULAR [None]
